FAERS Safety Report 10035380 (Version 2)
Quarter: 2014Q2

REPORT INFORMATION
  Report Type: Spontaneous
  Country: US (occurrence: US)
  Receive Date: 20140325
  Receipt Date: 20140422
  Transmission Date: 20141212
  Serious: No
  Sender: FDA-Public Use
  Company Number: US-PFIZER INC-2014082321

PATIENT
  Age: 39 Year
  Sex: Female
  Weight: 81.18 kg

DRUGS (2)
  1. EFFEXOR XR [Suspect]
     Indication: DEPRESSION
     Dosage: 150 MG, 1X/DAY
     Route: 048
  2. TOPAMAX [Concomitant]
     Dosage: UNK

REACTIONS (3)
  - Product quality issue [Unknown]
  - Migraine [Unknown]
  - Dizziness [Unknown]
